FAERS Safety Report 6765850-5 (Version None)
Quarter: 2010Q2

REPORT INFORMATION
  Report Type: 
  Country: None (occurrence: None)
  Receive Date: 20100611
  Receipt Date: 20100601
  Transmission Date: 20101027
  Serious: Yes (Other)
  Sender: FDA-Public Use
  Company Number: CA-BAYER-201027268GPV

PATIENT
  Age: 82 Year
  Sex: Female

DRUGS (16)
  1. ACETYLSALICYLIC ACID [Suspect]
     Dates: end: 20030301
  2. OCTREOTIDE ACETATE [Suspect]
     Indication: ANAEMIA
     Dosage: LAR
     Route: 030
     Dates: start: 20021201, end: 20030301
  3. OCTREOTIDE ACETATE [Suspect]
     Dosage: LAR
     Route: 030
     Dates: end: 20030801
  4. OCTREOTIDE ACETATE [Suspect]
     Dosage: TOTAL DAILY DOSE: 200 ?G
     Route: 058
     Dates: start: 20021201
  5. FERROUS SULFATE TAB [Concomitant]
     Indication: DRUG USE FOR UNKNOWN INDICATION
  6. PANTOPRAZOLE [Concomitant]
     Indication: DRUG USE FOR UNKNOWN INDICATION
  7. NITROGLYCERIN [Concomitant]
     Indication: DRUG USE FOR UNKNOWN INDICATION
  8. FUROSEMIDE [Concomitant]
     Indication: DRUG USE FOR UNKNOWN INDICATION
  9. LEVOTHYROXINE SODIUM [Concomitant]
     Indication: DRUG USE FOR UNKNOWN INDICATION
  10. METFORMIN [Concomitant]
     Indication: DRUG USE FOR UNKNOWN INDICATION
  11. GLYBURIDE [Concomitant]
     Indication: DRUG USE FOR UNKNOWN INDICATION
  12. ROFECOXIB [Concomitant]
     Indication: ARTHRALGIA
  13. EPOGEN [Concomitant]
     Indication: RENAL FAILURE
     Route: 030
     Dates: start: 20020101, end: 20030801
  14. EPOGEN [Concomitant]
     Route: 030
  15. RED BLOOD CELLS [Concomitant]
     Indication: ANAEMIA
     Dates: start: 20000301, end: 20021201
  16. RED BLOOD CELLS [Concomitant]
     Dates: start: 20030101

REACTIONS (3)
  - ANAEMIA [None]
  - GASTROINTESTINAL HAEMORRHAGE [None]
  - OCCULT BLOOD POSITIVE [None]
